FAERS Safety Report 5030522-4 (Version None)
Quarter: 2006Q2

REPORT INFORMATION
  Report Type: 
  Country: None (occurrence: None)
  Receive Date: 20060614
  Receipt Date: 20060525
  Transmission Date: 20061013
  Serious: Yes (Other)
  Sender: FDA-Public Use
  Company Number: 54756/575

PATIENT
  Age: 26 Year
  Sex: Female

DRUGS (1)
  1. POSTINOR-2 [Suspect]
     Indication: CONTRACEPTION
     Dosage: 2 TABLETS A DAY
     Route: 048
     Dates: start: 20050709, end: 20050907

REACTIONS (3)
  - ABORTION SPONTANEOUS [None]
  - DRUG EXPOSURE DURING PREGNANCY [None]
  - PREGNANCY AFTER POST COITAL CONTRACEPTION [None]
